FAERS Safety Report 7250556-9 (Version None)
Quarter: 2011Q1

REPORT INFORMATION
  Report Type: 
  Country: None (occurrence: None)
  Receive Date: 20110128
  Receipt Date: 20110126
  Transmission Date: 20110831
  Serious: Yes (Death)
  Sender: FDA-Public Use
  Company Number: PHHY2011US06226

PATIENT
  Sex: Female
  Weight: 59.864 kg

DRUGS (1)
  1. EXJADE [Suspect]
     Indication: MYELOFIBROSIS
     Dosage: 1500 MG, DAILY
     Route: 048
     Dates: start: 20080325

REACTIONS (1)
  - DEATH [None]
